FAERS Safety Report 6248548-1 (Version None)
Quarter: 2009Q2

REPORT INFORMATION
  Report Type: 
  Country: None (occurrence: None)
  Receive Date: 20090624
  Receipt Date: 20090624
  Transmission Date: 20091009
  Serious: No
  Sender: FDA-Public Use
  Company Number: None

PATIENT
  Age: 44 Year
  Sex: Female
  Weight: 97 kg

DRUGS (11)
  1. WARFARIN SODIUM [Suspect]
     Indication: THROMBOSIS
     Dosage: 1 -10MG PO QD
     Route: 048
     Dates: start: 20090406, end: 20090412
  2. ASPIRIN [Concomitant]
  3. DILTIAZEM [Concomitant]
  4. DOCUSATE [Concomitant]
  5. FERROUS SULFATE TAB [Concomitant]
  6. HYDROMORPHONE [Concomitant]
  7. LACTULOSE [Concomitant]
  8. METOCLOPRAMIDE [Concomitant]
  9. RANITIDINE [Concomitant]
  10. SENNA [Concomitant]
  11. SIMVASTATIN [Concomitant]

REACTIONS (3)
  - HAEMATEMESIS [None]
  - INTERNATIONAL NORMALISED RATIO INCREASED [None]
  - VAGINAL HAEMORRHAGE [None]
